FAERS Safety Report 5737204-1 (Version None)
Quarter: 2008Q2

REPORT INFORMATION
  Report Type: 
  Country: None (occurrence: None)
  Receive Date: 20080512
  Receipt Date: 20080512
  Transmission Date: 20081010
  Serious: Yes (Hospitalization)
  Sender: FDA-Public Use
  Company Number: None

PATIENT
  Age: 82 Year
  Sex: Male
  Weight: 85.5 kg

DRUGS (2)
  1. LISINOPRIL [Suspect]
     Indication: CARDIOVASCULAR DISORDER
     Dosage: 20MG EVERY DAY PO
     Route: 048
     Dates: start: 19990528, end: 20071218
  2. LISINOPRIL [Suspect]
     Indication: SURGERY
     Dosage: 20MG EVERY DAY PO
     Route: 048
     Dates: start: 19990528, end: 20071218

REACTIONS (2)
  - HYPERKALAEMIA [None]
  - SINUS BRADYCARDIA [None]
